FAERS Safety Report 12534561 (Version 1)
Quarter: 2016Q3

REPORT INFORMATION
  Report Type: Spontaneous
  Country: GB (occurrence: GB)
  Receive Date: 20160706
  Receipt Date: 20160706
  Transmission Date: 20161109
  Serious: Yes (Other)
  Sender: FDA-Public Use
  Company Number: GB-ABBVIE-16P-167-1669366-00

PATIENT
  Sex: Female

DRUGS (1)
  1. EPILIM [Suspect]
     Active Substance: VALPROATE SODIUM
     Indication: MATERNAL EXPOSURE TIMING UNSPECIFIED
     Route: 064

REACTIONS (12)
  - Sensory disturbance [Not Recovered/Not Resolved]
  - Motor developmental delay [Not Recovered/Not Resolved]
  - Neurodevelopmental disorder [Not Recovered/Not Resolved]
  - Ankyloglossia congenital [Recovered/Resolved]
  - Dysmorphism [Not Recovered/Not Resolved]
  - Attention deficit/hyperactivity disorder [Not Recovered/Not Resolved]
  - Visual impairment [Not Recovered/Not Resolved]
  - Foetal anticonvulsant syndrome [Unknown]
  - Hypermobility syndrome [Not Recovered/Not Resolved]
  - Incontinence [Not Recovered/Not Resolved]
  - Foetal exposure during pregnancy [Unknown]
  - Disturbance in social behaviour [Not Recovered/Not Resolved]

NARRATIVE: CASE EVENT DATE: 20110712
